FAERS Safety Report 9308240 (Version 1)
Quarter: 2013Q2

REPORT INFORMATION
  Report Type: Spontaneous
  Country: HU (occurrence: US)
  Receive Date: 20130524
  Receipt Date: 20130524
  Transmission Date: 20140414
  Serious: Yes (Other)
  Sender: FDA-Public Use
  Company Number: US-PFIZER INC-2013156780

PATIENT
  Age: 87 Year
  Sex: Male

DRUGS (5)
  1. METHYLPHENIDATE HYDROCHLORIDE [Suspect]
     Indication: APPETITE DISORDER
     Dosage: 2.5 MG, 2X/DAY
  2. METHYLPHENIDATE HYDROCHLORIDE [Suspect]
     Indication: AFFECTIVE DISORDER
  3. LEVODOPA-CARBIDOPA [Concomitant]
     Indication: PARKINSON^S DISEASE
     Dosage: CARBIDOPA 50 MG/LEVODOPA 200 MG; 3X/DAY
  4. LEVOTHYROXINE [Concomitant]
     Indication: HYPOTHYROIDISM
     Dosage: 125 MG/DAY
  5. SERTRALINE [Concomitant]
     Indication: DEPRESSION
     Dosage: 50 MG/DAY

REACTIONS (2)
  - Delirium [Unknown]
  - Dyskinesia [Unknown]
